FAERS Safety Report 5040665-7 (Version None)
Quarter: 2006Q2

REPORT INFORMATION
  Report Type: 
  Country: None (occurrence: None)
  Receive Date: 20060629
  Receipt Date: 20060629
  Transmission Date: 20061013
  Serious: No
  Sender: FDA-Public Use
  Company Number: None

PATIENT
  Age: 64 Year
  Sex: Female
  Weight: 86.1834 kg

DRUGS (10)
  1. XANAX XR [Suspect]
     Indication: ANXIETY
     Dosage: 1 PO DAILY
     Route: 048
     Dates: start: 20060517, end: 20060607
  2. REGLAN [Concomitant]
  3. NEXIUM [Concomitant]
  4. ALLEGRA [Concomitant]
  5. XANAX [Concomitant]
  6. ZETIA [Concomitant]
  7. LEXAPRO [Concomitant]
  8. WELLBUTRIN [Concomitant]
  9. TRAMADOL HCL [Concomitant]
  10. AMBIEN [Concomitant]

REACTIONS (5)
  - DRUG EFFECT DECREASED [None]
  - DRUG WITHDRAWAL SYNDROME [None]
  - EUPHORIC MOOD [None]
  - FEELING JITTERY [None]
  - SOMNOLENCE [None]
